FAERS Safety Report 5032055-8 (Version None)
Quarter: 2006Q2

REPORT INFORMATION
  Report Type: 
  Country: None (occurrence: None)
  Receive Date: 20060616
  Receipt Date: 20060605
  Transmission Date: 20061013
  Serious: Yes (Other)
  Sender: FDA-Public Use
  Company Number: CHPA2006US05600

PATIENT
  Age: 40 Year
  Sex: Female

DRUGS (4)
  1. EX-LAX UNKNOWN (NCH) (UNKNOWN) UNKNOWN [Suspect]
     Indication: CONSTIPATION
     Dosage: 8 TO 10 PILLS AT A TIME, BIW
     Dates: start: 19860101, end: 20040101
  2. CORRECTOL [Suspect]
     Indication: CONSTIPATION
     Dosage: 8 TO 10 PILLS AT A TIME, BIW
     Dates: start: 19860101, end: 20040101
  3. FEEN-A-MINT(PHENOLPHTHALEN) [Suspect]
     Indication: CONSTIPATION
     Dosage: 8 TO 10 PILLS AT A TIME, BIW
     Dates: start: 19860101, end: 20040101
  4. FLEET ENEMA (SODIUM PHOSPHATE, SODIUM PHOSPHATE MONOBASIC (ANHYDRATE)) [Suspect]
     Indication: CONSTIPATION
     Dosage: BIW
     Dates: start: 19860101, end: 20040101

REACTIONS (9)
  - ABDOMINAL PAIN LOWER [None]
  - ABDOMINAL PAIN UPPER [None]
  - COLITIS ULCERATIVE [None]
  - DRUG ABUSER [None]
  - HAEMATOCHEZIA [None]
  - INFLAMMATION [None]
  - OVERDOSE [None]
  - PROCTITIS ULCERATIVE [None]
  - RECTAL HAEMORRHAGE [None]
